FAERS Safety Report 17141324 (Version 3)
Quarter: 2020Q1

REPORT INFORMATION
  Report Type: Report from Study
  Country: BR (occurrence: BR)
  Receive Date: 20191211
  Receipt Date: 20200226
  Transmission Date: 20200409
  Serious: Yes (Other)
  Sender: FDA-Public Use
  Company Number: PHHY2019BR063249

PATIENT
  Age: 50 Year
  Sex: Female
  Weight: 56 kg

DRUGS (16)
  1. GILENYA [Suspect]
     Active Substance: FINGOLIMOD HYDROCHLORIDE
     Dosage: ONCE A DAY/ON ALTERNATIVE DAYS
     Route: 065
  2. SIMVASTATIN. [Concomitant]
     Active Substance: SIMVASTATIN
     Indication: BLOOD CHOLESTEROL INCREASED
     Dosage: UNK, QD
     Route: 048
  3. DEXILANT [Concomitant]
     Active Substance: DEXLANSOPRAZOLE
     Indication: PRODUCT USED FOR UNKNOWN INDICATION
     Dosage: 60 MG, UNK
     Route: 065
     Dates: start: 2018
  4. MANTIDAN [Concomitant]
     Active Substance: AMANTADINE HYDROCHLORIDE
     Indication: PRODUCT USED FOR UNKNOWN INDICATION
     Dosage: UNK UNK, QD
     Route: 048
  5. GILENYA [Suspect]
     Active Substance: FINGOLIMOD HYDROCHLORIDE
     Dosage: 0.5 MG, QD
     Route: 048
     Dates: start: 20191202
  6. ALPRAZOLAM. [Concomitant]
     Active Substance: ALPRAZOLAM
     Indication: BONE DISORDER
     Route: 065
  7. VITAMIN D [Concomitant]
     Active Substance: VITAMIN D NOS
     Indication: VITAMIN SUPPLEMENTATION
     Dosage: UNK, QD
     Route: 048
  8. GILENYA [Suspect]
     Active Substance: FINGOLIMOD HYDROCHLORIDE
     Dosage: 0.5 MG, QD
     Route: 048
     Dates: start: 20190204
  9. GILENYA [Suspect]
     Active Substance: FINGOLIMOD HYDROCHLORIDE
     Dosage: UNK
     Route: 065
     Dates: start: 201902
  10. GILENYA [Suspect]
     Active Substance: FINGOLIMOD HYDROCHLORIDE
     Dosage: 0.5 MG, QD
     Route: 048
  11. GILENYA [Suspect]
     Active Substance: FINGOLIMOD HYDROCHLORIDE
     Dosage: 1 DF, STARTED ON 04 FEB UNKNOWN YEAR
     Route: 065
  12. GILENYA [Suspect]
     Active Substance: FINGOLIMOD HYDROCHLORIDE
     Dosage: 0.5 MG, QOD
     Route: 048
     Dates: start: 20190701
  13. AVONEX [Concomitant]
     Active Substance: INTERFERON BETA-1A
     Indication: PRODUCT USED FOR UNKNOWN INDICATION
     Route: 065
  14. GILENYA [Suspect]
     Active Substance: FINGOLIMOD HYDROCHLORIDE
     Indication: MULTIPLE SCLEROSIS
     Dosage: 0.5 MG (ALTERNATE DAY)
     Route: 048
     Dates: end: 20120702
  15. DESOL [Concomitant]
     Indication: BONE DISORDER
     Dosage: UNK
     Route: 065
     Dates: start: 2018
  16. SINVASTATINA [Concomitant]
     Active Substance: SIMVASTATIN
     Indication: PRODUCT USED FOR UNKNOWN INDICATION
     Dosage: UNK, QD
     Route: 048

REACTIONS (40)
  - Chills [Recovered/Resolved]
  - Fall [Unknown]
  - Dry mouth [Recovered/Resolved]
  - Back pain [Unknown]
  - Muscle spasms [Unknown]
  - Gait disturbance [Unknown]
  - Weight increased [Not Recovered/Not Resolved]
  - Pyrexia [Unknown]
  - Aspartate aminotransferase increased [Unknown]
  - Inflammatory bowel disease [Recovered/Resolved]
  - Piloerection [Recovered/Resolved]
  - Feeling abnormal [Unknown]
  - Alopecia [Unknown]
  - Gamma-glutamyltransferase increased [Unknown]
  - Fatigue [Not Recovered/Not Resolved]
  - Zika virus infection [Unknown]
  - Asthenia [Recovered/Resolved]
  - Prescribed underdose [Recovered/Resolved]
  - Muscular weakness [Recovered/Resolved]
  - Choking [Unknown]
  - Waist circumference increased [Not Recovered/Not Resolved]
  - Gastritis [Recovered/Resolved]
  - Cough [Recovering/Resolving]
  - Multiple sclerosis [Not Recovered/Not Resolved]
  - Multiple fractures [Not Recovered/Not Resolved]
  - Vomiting [Recovered/Resolved]
  - Dehydration [Recovered/Resolved]
  - Gastritis [Recovered/Resolved]
  - Eating disorder [Recovered/Resolved]
  - Dyspnoea [Unknown]
  - Product prescribing error [Unknown]
  - Back pain [Recovered/Resolved]
  - Gastrointestinal disorder [Unknown]
  - Nasopharyngitis [Recovered/Resolved]
  - Limb discomfort [Not Recovered/Not Resolved]
  - Inflammation [Recovered/Resolved]
  - Pain [Recovered/Resolved]
  - Feeling of body temperature change [Unknown]
  - Spinal disorder [Recovered/Resolved]
  - Dysstasia [Recovered/Resolved]

NARRATIVE: CASE EVENT DATE: 20190701
